FAERS Safety Report 21753385 (Version 1)
Quarter: 2022Q4

REPORT INFORMATION
  Report Type: Report from Study
  Country: US (occurrence: US)
  Receive Date: 20221220
  Receipt Date: 20221220
  Transmission Date: 20230113
  Serious: No
  Sender: FDA-Public Use
  Company Number: US-ABBVIE-4243096

PATIENT
  Sex: Male

DRUGS (1)
  1. IMBRUVICA [Suspect]
     Active Substance: IBRUTINIB
     Indication: B-cell small lymphocytic lymphoma
     Route: 048
     Dates: start: 202201

REACTIONS (7)
  - Wound [Unknown]
  - Insomnia [Unknown]
  - Fatigue [Unknown]
  - Tongue erythema [Unknown]
  - Glossodynia [Unknown]
  - Feeling cold [Unknown]
  - Cardiovascular disorder [Unknown]
